APPROVED DRUG PRODUCT: EXALGO
Active Ingredient: HYDROMORPHONE HYDROCHLORIDE
Strength: 32MG **Federal Register determination that product was not discontinued or withdrawn for safety or effectiveness reasons**
Dosage Form/Route: TABLET, EXTENDED RELEASE;ORAL
Application: N021217 | Product #004
Applicant: SPECGX LLC
Approved: Aug 24, 2012 | RLD: Yes | RS: No | Type: DISCN